FAERS Safety Report 6189380-7 (Version None)
Quarter: 2009Q2

REPORT INFORMATION
  Report Type: 
  Country: None (occurrence: None)
  Receive Date: 20090512
  Receipt Date: 20090427
  Transmission Date: 20091009
  Serious: Yes (Life-Threatening, Hospitalization, Disabling)
  Sender: FDA-Public Use
  Company Number: 2009S1007295

PATIENT
  Age: 51 Year
  Sex: Male

DRUGS (2)
  1. ETANERCEPT [Suspect]
     Indication: PSORIATIC ARTHROPATHY
  2. METHOTREXATE [Suspect]
     Indication: PSORIATIC ARTHROPATHY

REACTIONS (17)
  - CANDIDIASIS [None]
  - DRUG EFFECT DECREASED [None]
  - DYSPHAGIA [None]
  - EXTRADURAL ABSCESS [None]
  - INFARCTION [None]
  - INTERVERTEBRAL DISCITIS [None]
  - MENINGITIS BACTERIAL [None]
  - MENTAL STATUS CHANGES [None]
  - MUSCULAR WEAKNESS [None]
  - OSTEOMYELITIS [None]
  - POST PROCEDURAL COMPLICATION [None]
  - PULMONARY EMBOLISM [None]
  - QUADRIPLEGIA [None]
  - RESPIRATORY FAILURE [None]
  - SERRATIA INFECTION [None]
  - SPINAL VASCULAR DISORDER [None]
  - STAPHYLOCOCCAL ABSCESS [None]
